FAERS Safety Report 9601461 (Version 1)
Quarter: 2013Q4

REPORT INFORMATION
  Report Type: Spontaneous
  Country: US (occurrence: US)
  Receive Date: 20131007
  Receipt Date: 20131007
  Transmission Date: 20140711
  Serious: No
  Sender: FDA-Public Use
  Company Number: US-009507513-1310USA000885

PATIENT
  Age: 43 Year
  Sex: Female

DRUGS (1)
  1. SAPHRIS [Suspect]
     Indication: BIPOLAR I DISORDER
     Dosage: 10 MG, HS
     Route: 060
     Dates: start: 20130927, end: 20130930

REACTIONS (3)
  - Dyspnoea [Recovering/Resolving]
  - Swelling [Recovering/Resolving]
  - Food allergy [Recovering/Resolving]
